FAERS Safety Report 9172143 (Version 1)
Quarter: 2013Q1

REPORT INFORMATION
  Report Type: Spontaneous
  Country: US (occurrence: US)
  Receive Date: 20130319
  Receipt Date: 20130319
  Transmission Date: 20140127
  Serious: No
  Sender: FDA-Public Use
  Company Number: US-TEVA-390675USA

PATIENT
  Age: 71 Year
  Sex: Male

DRUGS (2)
  1. QVAR [Suspect]
     Indication: BRONCHIECTASIS
     Dosage: 80 2PBID
     Dates: start: 201212
  2. SYMBICORT [Concomitant]
     Dosage: 160/4.5. 2PBID

REACTIONS (1)
  - Off label use [Unknown]
